FAERS Safety Report 18035684 (Version 1)
Quarter: 2020Q3

REPORT INFORMATION
  Report Type: Report from Study
  Country: US (occurrence: US)
  Receive Date: 20200717
  Receipt Date: 20200717
  Transmission Date: 20201103
  Serious: Yes (Hospitalization, Other)
  Sender: FDA-Public Use
  Company Number: US-B.I. PHARMACEUTICALS,INC./RIDGEFIELD-2020-MR-024783

PATIENT
  Age: 68 Year
  Sex: Female

DRUGS (3)
  1. OFEV [Suspect]
     Active Substance: NINTEDANIB
     Indication: INTERSTITIAL LUNG DISEASE
     Route: 048
     Dates: start: 20200527, end: 20200605
  2. OFEV [Suspect]
     Active Substance: NINTEDANIB
     Route: 048
  3. OFEV [Suspect]
     Active Substance: NINTEDANIB
     Indication: IDIOPATHIC PULMONARY FIBROSIS
     Dosage: 150 MG EVERY 12 HOURS
     Route: 048
     Dates: start: 20200312, end: 20200526

REACTIONS (17)
  - Diarrhoea [Not Recovered/Not Resolved]
  - Gastric infection [Unknown]
  - Abdominal pain [Recovering/Resolving]
  - Diverticulitis [Recovering/Resolving]
  - Ageusia [Not Recovered/Not Resolved]
  - Haematemesis [Recovered/Resolved]
  - Abdominal discomfort [Unknown]
  - Pancreatitis acute [Recovering/Resolving]
  - Nausea [Not Recovered/Not Resolved]
  - Abdominal pain upper [Unknown]
  - Vomiting [Recovering/Resolving]
  - Fluid intake reduced [Not Recovered/Not Resolved]
  - Rectal haemorrhage [Recovered/Resolved]
  - Oropharyngeal pain [Unknown]
  - Haematochezia [Recovered/Resolved]
  - Feeding disorder [Not Recovered/Not Resolved]
  - Illness [Unknown]

NARRATIVE: CASE EVENT DATE: 202005
